FAERS Safety Report 19785466 (Version 2)
Quarter: 2021Q3

REPORT INFORMATION
  Report Type: Report from Study
  Country: AR (occurrence: AR)
  Receive Date: 20210903
  Receipt Date: 20210916
  Transmission Date: 20211014
  Serious: Yes (Other)
  Sender: FDA-Public Use
  Company Number: NVSC2021AR027134

PATIENT
  Age: 62 Year
  Sex: Female

DRUGS (2)
  1. KISQALI [Suspect]
     Active Substance: RIBOCICLIB
     Indication: BREAST CANCER METASTATIC
     Dosage: 600 MG, QD
     Route: 048
     Dates: start: 20191023
  2. KISQALI [Suspect]
     Active Substance: RIBOCICLIB
     Dosage: 5 MG, QD
     Route: 048
     Dates: start: 20210323

REACTIONS (8)
  - Asthenia [Unknown]
  - Incorrect dose administered [Unknown]
  - Decreased appetite [Unknown]
  - Metastases to bone [Unknown]
  - Insomnia [Unknown]
  - COVID-19 [Unknown]
  - Stress [Unknown]
  - Metastases to central nervous system [Unknown]

NARRATIVE: CASE EVENT DATE: 20210323
